FAERS Safety Report 13932658 (Version 1)
Quarter: 2017Q3

REPORT INFORMATION
  Report Type: Report from Study
  Country: US (occurrence: US)
  Receive Date: 20170904
  Receipt Date: 20170904
  Transmission Date: 20171127
  Serious: Yes (Hospitalization, Other)
  Sender: FDA-Public Use
  Company Number: US-ROCHE-1986709

PATIENT

DRUGS (5)
  1. PEGFILGRASTIM [Concomitant]
     Active Substance: PEGFILGRASTIM
     Route: 058
  2. DEXAMETHASONE. [Suspect]
     Active Substance: DEXAMETHASONE
     Indication: B-CELL LYMPHOMA RECURRENT
     Dosage: DAYS 2-5
     Route: 065
  3. OXALIPLATIN. [Suspect]
     Active Substance: OXALIPLATIN
     Indication: B-CELL LYMPHOMA RECURRENT
     Dosage: OVER 2 HOURS ON DAY 2
     Route: 042
  4. RITUXIMAB. [Suspect]
     Active Substance: RITUXIMAB
     Indication: B-CELL LYMPHOMA RECURRENT
     Dosage: ON DAYS 1, 8, 15, AND 22 (CYCLE 1 ONLY)
     Route: 042
  5. CYTARABINE. [Suspect]
     Active Substance: CYTARABINE
     Indication: B-CELL LYMPHOMA RECURRENT
     Dosage: IN 250 ML OF 5% DEXTROSE WATER (D5W) OVER THREE HOURS X TWO DOSES ON DAYS 2-3.
     Route: 042

REACTIONS (14)
  - Febrile neutropenia [Unknown]
  - Sepsis [Unknown]
  - Nausea [Unknown]
  - Platelet count decreased [Unknown]
  - Dehydration [Unknown]
  - Pneumonia [Unknown]
  - Fatigue [Unknown]
  - Vomiting [Unknown]
  - Neutrophil count decreased [Unknown]
  - Peripheral sensory neuropathy [Unknown]
  - Peripheral motor neuropathy [Unknown]
  - Diarrhoea [Unknown]
  - Haemoglobin decreased [Unknown]
  - Hypokalaemia [Unknown]
